FAERS Safety Report 9171770 (Version 2)
Quarter: 2013Q1

REPORT INFORMATION
  Report Type: Spontaneous
  Country: FR (occurrence: None)
  Receive Date: 20130307
  Receipt Date: 20130314
  Transmission Date: 20140127
  Serious: Yes (Hospitalization)
  Sender: FDA-Public Use
  Company Number: 2013034920

PATIENT
  Age: 66 Year
  Sex: Female

DRUGS (12)
  1. PRIVIGEN [Suspect]
     Indication: ANTISYNTHETASE SYNDROME
     Route: 042
     Dates: start: 20130201, end: 20130205
  2. DIFFU K (POTASSIUM CHLORIDE) [Concomitant]
  3. FLAGYL/00012501/(METRONDIAZOLE) [Concomitant]
  4. INEXIUM (ESOMEPRAZOLE MAGNESIUM) [Concomitant]
  5. LASILIX (FUROSEMIDE) [Concomitant]
  6. LEVOTHYROX (LEVOTHYROXINE SODIUM) INFUSION [Concomitant]
  7. PREVISCAN (FLUINDIONE) [Concomitant]
  8. SLUPRPED/00016201/(PREDNISOLONE) [Concomitant]
  9. TRACLEER (BOSENTAN) [Concomitant]
  10. SMECTA/00837601/(SMECTA)/00837601 [Concomitant]
  11. APROVEL (IRBESARTAN) [Concomitant]
  12. ATARAX/00058401/(HYDROXINE) [Concomitant]

REACTIONS (2)
  - Haemolytic anaemia [None]
  - Off label use [None]
